FAERS Safety Report 6046815-8 (Version None)
Quarter: 2009Q1

REPORT INFORMATION
  Report Type: 
  Country: None (occurrence: None)
  Receive Date: 20090122
  Receipt Date: 20090116
  Transmission Date: 20090719
  Serious: Yes (Other)
  Sender: FDA-Public Use
  Company Number: A0764025A

PATIENT

DRUGS (2)
  1. SEREVENT [Suspect]
     Indication: DRUG USE FOR UNKNOWN INDICATION
     Dosage: 50MCG TWICE PER DAY
     Route: 055
  2. SPIRIVA [Suspect]
     Indication: DRUG USE FOR UNKNOWN INDICATION
     Dosage: 18MCG PER DAY
     Route: 055

REACTIONS (1)
  - PNEUMONIA [None]
